FAERS Safety Report 8472260-1 (Version None)
Quarter: 2012Q2

REPORT INFORMATION
  Report Type: 
  Country: None (occurrence: None)
  Receive Date: 20120323
  Receipt Date: 20110823
  Transmission Date: 20120825
  Serious: Yes (Hospitalization)
  Sender: FDA-Public Use
  Company Number: 163-21880-11082662

PATIENT
  Age: 78 Year
  Sex: Female
  Weight: 76.6579 kg

DRUGS (11)
  1. ISOSORBIDE (ISOSORBIDE)(UNKNOWN) [Concomitant]
  2. AMLODIPINE [Concomitant]
  3. DEXAMETHASONE [Concomitant]
  4. NITROGLYCERIN [Concomitant]
  5. ASPIRIN [Concomitant]
  6. LENALIDOMIDE [Suspect]
     Indication: MULTIPLE MYELOMA
     Dosage: 10 MG, QDAY FOR 21 DAYS, PO
     Route: 048
  7. OMEPRAZOLE [Concomitant]
  8. NOVOLOG (INSULIN ASPART)(UNKNOWN) [Concomitant]
  9. LANTUS [Concomitant]
  10. CALCITRIOL (CALCITRIOL)(UNKNOWN) [Concomitant]
  11. SIMVASTATIN [Concomitant]

REACTIONS (1)
  - VOMITING [None]
